FAERS Safety Report 7801633-2 (Version None)
Quarter: 2011Q4

REPORT INFORMATION
  Report Type: 
  Country: None (occurrence: None)
  Receive Date: 20111005
  Receipt Date: 20110920
  Transmission Date: 20120403
  Serious: Yes (Other)
  Sender: FDA-Public Use
  Company Number: 2011BN000087

PATIENT
  Age: 61 Year
  Sex: Female

DRUGS (7)
  1. MELPHALAN HYDROCHLORIDE [Suspect]
     Indication: MALIGNANT MELANOMA STAGE III
     Dosage: 7 MG/L, IV
     Route: 042
  2. DALTEPARIN SODIUM [Concomitant]
  3. PROTAMINE SULFATE [Concomitant]
  4. ASPIRIN [Concomitant]
  5. HEPARIN [Concomitant]
  6. DACTINOMYCIN [Suspect]
     Indication: MALIGNANT MELANOMA STAGE III
     Dosage: IV
     Route: 042
  7. CORITOCOSTEROIDS [Concomitant]

REACTIONS (1)
  - CELLULITIS [None]
